FAERS Safety Report 7987345-3 (Version None)
Quarter: 2011Q4

REPORT INFORMATION
  Report Type: 
  Country: None (occurrence: None)
  Receive Date: 20111216
  Receipt Date: 20111208
  Transmission Date: 20120403
  Serious: Yes (Other)
  Sender: FDA-Public Use
  Company Number: US-JNJFOC-20111206930

PATIENT
  Sex: Male
  Weight: 123.38 kg

DRUGS (2)
  1. XARELTO [Suspect]
     Indication: THROMBOSIS PROPHYLAXIS
     Route: 048
     Dates: start: 20111001
  2. WELLBUTRIN [Concomitant]
     Indication: TOBACCO USER

REACTIONS (11)
  - PARAESTHESIA [None]
  - VOMITING [None]
  - INFLUENZA LIKE ILLNESS [None]
  - DIZZINESS [None]
  - WEIGHT DECREASED [None]
  - HYPOAESTHESIA [None]
  - COUGH [None]
  - ASTHENIA [None]
  - MUSCULAR WEAKNESS [None]
  - OEDEMA PERIPHERAL [None]
  - FEELING HOT [None]
